FAERS Safety Report 8833277 (Version 1)
Quarter: 2012Q4

REPORT INFORMATION
  Report Type: 
  Country: GB (occurrence: GB)
  Receive Date: 20121010
  Receipt Date: 20121010
  Transmission Date: 20130627
  Serious: Yes (Other)
  Sender: FDA-Public Use
  Company Number: GB-TEVA-363125ISR

PATIENT
  Sex: Female

DRUGS (1)
  1. SERTRALINE [Suspect]

REACTIONS (2)
  - Loss of consciousness [Unknown]
  - Altered state of consciousness [Unknown]
